FAERS Safety Report 5535782-9 (Version None)
Quarter: 2007Q4

REPORT INFORMATION
  Report Type: 
  Country: None (occurrence: None)
  Receive Date: 20071206
  Receipt Date: 20071130
  Transmission Date: 20080405
  Serious: Yes (Other)
  Sender: FDA-Public Use
  Company Number: US-WYE-H01570807

PATIENT
  Sex: Female

DRUGS (1)
  1. PHOSPHOLINE IODIDE [Suspect]
     Dosage: UNKNOWN (6.25 MG (0.125%) STRENGTH)
     Route: 047

REACTIONS (1)
  - BLINDNESS UNILATERAL [None]
